FAERS Safety Report 23565700 (Version 3)
Quarter: 2024Q1

REPORT INFORMATION
  Report Type: Spontaneous
  Country: US (occurrence: US)
  Receive Date: 20240226
  Receipt Date: 20240306
  Transmission Date: 20240409
  Serious: No
  Sender: FDA-Public Use
  Company Number: US-PFIZER INC-PV202400020948

PATIENT
  Age: 71 Year
  Sex: Female

DRUGS (2)
  1. BOSULIF [Suspect]
     Active Substance: BOSUTINIB MONOHYDRATE
     Indication: Acute lymphocytic leukaemia
     Dosage: TAKE 3 TABLETS (300 MG TOTAL) BY MOUTH DAILY/TAKE WITH FOOD. SWALLOW WHOLE. DO NOT CRUSH OR CUT. DO
     Route: 048
     Dates: start: 20231027
  2. BOSULIF [Suspect]
     Active Substance: BOSUTINIB MONOHYDRATE
     Dosage: 100 MG

REACTIONS (2)
  - Neoplasm progression [Unknown]
  - Off label use [Unknown]
